FAERS Safety Report 10365483 (Version 2)
Quarter: 2014Q3

REPORT INFORMATION
  Report Type: Report from Study
  Country: FR (occurrence: FR)
  Receive Date: 20140806
  Receipt Date: 20140806
  Transmission Date: 20150326
  Serious: Yes (Hospitalization)
  Sender: FDA-Public Use
  Company Number: FR-BAYER-2014-084771

PATIENT
  Age: 67 Year
  Sex: Male
  Weight: 65 kg

DRUGS (18)
  1. DEBRIDAT [Concomitant]
     Active Substance: TRIMEBUTINE MALEATE
     Indication: ABDOMINAL PAIN
     Dosage: 200MG
     Dates: start: 20140605
  2. DEBRIDAT [Concomitant]
     Active Substance: TRIMEBUTINE MALEATE
     Indication: TUMOUR PAIN
     Dosage: (1-1-1)
  3. MACROGOL [Concomitant]
     Active Substance: POLYETHYLENE GLYCOLS
     Indication: CONSTIPATION
     Dosage: PRN
     Dates: start: 20140508
  4. SKENAN [Concomitant]
     Active Substance: MORPHINE SULFATE
     Indication: TUMOUR PAIN
     Dosage: 20 MG, BID
     Dates: start: 20140529
  5. PLACEBO [Suspect]
     Active Substance: UNSPECIFIED INGREDIENT
     Indication: RETROPERITONEAL MASS
     Dosage: UNK
     Dates: start: 20140322, end: 20140512
  6. OFLOXACINE A [Concomitant]
     Indication: INFECTION
     Dosage: 400 MG, TOTAL DAILY DOSE
     Dates: start: 20140527
  7. SPASFON [Concomitant]
     Active Substance: PHLOROGLUCINOL
     Indication: TUMOUR PAIN
     Dosage: (1-1-1)
  8. SOLUPRED [PREDNISOLONE] [Concomitant]
     Active Substance: PREDNISOLONE
     Indication: DECREASED APPETITE
     Dosage: 20 (2-0-0)
  9. TOPALGIC [TRAMADOL HYDROCHLORIDE] [Concomitant]
     Indication: TUMOUR PAIN
     Dosage: 300MG
     Dates: start: 20140605
  10. TOPALGIC [TRAMADOL HYDROCHLORIDE] [Concomitant]
     Indication: TUMOUR PAIN
     Dosage: 150 MG MORNING
  11. INEXIUM [Concomitant]
     Active Substance: ESOMEPRAZOLE
     Indication: GASTROOESOPHAGEAL REFLUX PROPHYLAXIS
     Dosage: 20 MG, DAILY
     Dates: start: 20140605
  12. SPASFON [Concomitant]
     Active Substance: PHLOROGLUCINOL
     Indication: ABDOMINAL PAIN
     Dosage: 2/ DAY
     Dates: start: 20140605
  13. CHONDROSULF [Concomitant]
     Active Substance: CHONDROITIN SULFATE (CHICKEN)
     Indication: OSTEOARTHRITIS
     Dosage: 400MG
     Dates: start: 2006
  14. NUX VOMICA HOMACCORD [Concomitant]
     Active Substance: HERBALS
     Indication: NAUSEA
     Dosage: PRN
     Dates: start: 20140324
  15. LEXOMIL [Concomitant]
     Active Substance: BROMAZEPAM
     Indication: ANXIETY
     Dosage: 6 MG, TOTAL DAILY DOSE
     Dates: start: 20140503
  16. SOLUPRED [PREDNISOLONE] [Concomitant]
     Active Substance: PREDNISOLONE
     Indication: DECREASED APPETITE
     Dosage: 60MG
     Dates: start: 20140605
  17. REGORAFENIB [Suspect]
     Active Substance: REGORAFENIB
     Indication: RETROPERITONEAL MASS
     Dosage: 160 MG, TOTAL DAILY DOSE
     Route: 048
     Dates: start: 20140521, end: 20140709
  18. DAFALGAN [Concomitant]
     Active Substance: ACETAMINOPHEN
     Indication: TUMOUR PAIN
     Dosage: 2 G, TOTAL DAILY DOSE

REACTIONS (4)
  - Bicytopenia [Recovered/Resolved]
  - Thrombophlebitis [Recovered/Resolved]
  - General physical health deterioration [Recovered/Resolved]
  - General physical health deterioration [Not Recovered/Not Resolved]

NARRATIVE: CASE EVENT DATE: 20140530
